FAERS Safety Report 5477757-4 (Version None)
Quarter: 2007Q3

REPORT INFORMATION
  Report Type: 
  Country: None (occurrence: None)
  Receive Date: 20070831
  Receipt Date: 20070723
  Transmission Date: 20080115
  Serious: No
  Sender: FDA-Public Use
  Company Number: PHEH2007US10254

PATIENT
  Age: 82 Year
  Sex: Male

DRUGS (1)
  1. EXJADE [Suspect]
     Dosage: 3, QD, ORAL
     Route: 048
     Dates: start: 20070511

REACTIONS (1)
  - PRURITUS GENERALISED [None]
